FAERS Safety Report 5911058-2 (Version None)
Quarter: 2008Q4

REPORT INFORMATION
  Report Type: 
  Country: None (occurrence: None)
  Receive Date: 20081007
  Receipt Date: 20080926
  Transmission Date: 20090506
  Serious: Yes (Hospitalization)
  Sender: FDA-Public Use
  Company Number: US-AVENTIS-200718369US

PATIENT
  Sex: Male

DRUGS (13)
  1. KETEK [Suspect]
     Indication: PNEUMONIA
     Dosage: DOSE: UNK
     Dates: start: 20050402
  2. ZOCOR [Suspect]
     Dosage: DOSE: UNK
     Dates: end: 20050101
  3. TRICOR                             /00090101/ [Concomitant]
     Dosage: DOSE: UNK
  4. INSULIN [Concomitant]
     Dosage: DOSE: UNK
  5. COUMADIN [Concomitant]
     Dosage: DOSE: UNK
  6. LABETOLOL [Concomitant]
  7. ALLOPURINOL [Concomitant]
  8. ACTOS [Concomitant]
  9. NITROSTAT [Concomitant]
     Dosage: DOSE: UNK
  10. MECLIZINE [Concomitant]
  11. VITAMIN B NOS [Concomitant]
     Dosage: DOSE: UNK
  12. VITAMIN E [Concomitant]
     Dosage: DOSE: UNK
  13. FLONASE [Concomitant]
     Dosage: DOSE: UNK

REACTIONS (12)
  - ABDOMINAL PAIN [None]
  - HEPATITIS ACUTE [None]
  - HYPOTENSION [None]
  - INTERNATIONAL NORMALISED RATIO INCREASED [None]
  - JAUNDICE [None]
  - LABORATORY TEST ABNORMAL [None]
  - LEUKOCYTOSIS [None]
  - LIVER FUNCTION TEST ABNORMAL [None]
  - NAUSEA [None]
  - PANCREATITIS [None]
  - RENAL FAILURE ACUTE [None]
  - RESPIRATORY FAILURE [None]
